FAERS Safety Report 20381978 (Version 1)
Quarter: 2022Q1

REPORT INFORMATION
  Report Type: Report from Study
  Country: US (occurrence: US)
  Receive Date: 20220127
  Receipt Date: 20220127
  Transmission Date: 20220423
  Serious: Yes (Other)
  Sender: FDA-Public Use
  Company Number: US-MYLANLABS-2022M1006703

PATIENT
  Sex: Female

DRUGS (32)
  1. RIZATRIPTAN [Suspect]
     Active Substance: RIZATRIPTAN
     Indication: Migraine without aura
     Dosage: UNK
     Route: 065
  2. RIZATRIPTAN [Suspect]
     Active Substance: RIZATRIPTAN
     Indication: Migraine
  3. PROPRANOLOL [Suspect]
     Active Substance: PROPRANOLOL HYDROCHLORIDE
     Indication: Migraine without aura
     Dosage: UNK
     Route: 065
  4. PROPRANOLOL [Suspect]
     Active Substance: PROPRANOLOL HYDROCHLORIDE
     Indication: Migraine
  5. SUMATRIPTAN [Suspect]
     Active Substance: SUMATRIPTAN
     Indication: Migraine without aura
     Dosage: UNK
     Route: 065
  6. SUMATRIPTAN [Suspect]
     Active Substance: SUMATRIPTAN
     Indication: Migraine
  7. ZOLMITRIPTAN [Suspect]
     Active Substance: ZOLMITRIPTAN
     Indication: Migraine without aura
     Dosage: UNK
     Route: 065
  8. ZOLMITRIPTAN [Suspect]
     Active Substance: ZOLMITRIPTAN
     Indication: Migraine
  9. NADOLOL [Suspect]
     Active Substance: NADOLOL
     Indication: Migraine without aura
     Dosage: UNK
     Route: 065
  10. NADOLOL [Suspect]
     Active Substance: NADOLOL
     Indication: Migraine
  11. ERENUMAB [Suspect]
     Active Substance: ERENUMAB
     Indication: Migraine without aura
     Dosage: 70 MILLIGRAM, 30 DAYS
     Route: 065
  12. ERENUMAB [Suspect]
     Active Substance: ERENUMAB
     Indication: Migraine
  13. ACETAMINOPHEN\CAFFEINE CITRATE [Concomitant]
     Active Substance: ACETAMINOPHEN\CAFFEINE CITRATE
     Indication: Migraine without aura
     Dosage: UNK
     Route: 065
  14. ACETAMINOPHEN\CAFFEINE CITRATE [Concomitant]
     Active Substance: ACETAMINOPHEN\CAFFEINE CITRATE
     Indication: Migraine
  15. MAGNESIUM [Concomitant]
     Active Substance: MAGNESIUM
     Indication: Migraine without aura
     Dosage: UNK
     Route: 065
  16. MAGNESIUM [Concomitant]
     Active Substance: MAGNESIUM
     Indication: Migraine
  17. NORTRIPTYLINE [Concomitant]
     Active Substance: NORTRIPTYLINE
     Indication: Migraine without aura
     Dosage: UNK
     Route: 065
  18. NORTRIPTYLINE [Concomitant]
     Active Substance: NORTRIPTYLINE
     Indication: Migraine
  19. TOPIRAMATE [Concomitant]
     Active Substance: TOPIRAMATE
     Indication: Migraine without aura
     Dosage: UNK
     Route: 065
  20. TOPIRAMATE [Concomitant]
     Active Substance: TOPIRAMATE
     Indication: Migraine
  21. PROCHLORPERAZINE [Concomitant]
     Active Substance: PROCHLORPERAZINE
     Indication: Migraine without aura
     Dosage: UNK
     Route: 065
  22. PROCHLORPERAZINE [Concomitant]
     Active Substance: PROCHLORPERAZINE
     Indication: Migraine
  23. BUTALBITAL, ACETAMINOPHEN, AND CAFFEINE [Concomitant]
     Active Substance: ACETAMINOPHEN\BUTALBITAL\CAFFEINE
     Indication: Migraine without aura
     Dosage: UNK
     Route: 065
  24. BUTALBITAL, ACETAMINOPHEN, AND CAFFEINE [Concomitant]
     Active Substance: ACETAMINOPHEN\BUTALBITAL\CAFFEINE
     Indication: Migraine
  25. ACETAMINOPHEN [Concomitant]
     Active Substance: ACETAMINOPHEN
     Indication: Migraine without aura
     Dosage: UNK
     Route: 065
  26. ACETAMINOPHEN [Concomitant]
     Active Substance: ACETAMINOPHEN
     Indication: Migraine
  27. DIPHENHYDRAMINE [Concomitant]
     Active Substance: DIPHENHYDRAMINE
     Indication: Migraine without aura
     Dosage: UNK
     Route: 065
  28. DIPHENHYDRAMINE [Concomitant]
     Active Substance: DIPHENHYDRAMINE
     Indication: Migraine
  29. CYCLOBENZAPRINE [Concomitant]
     Active Substance: CYCLOBENZAPRINE
     Indication: Migraine without aura
     Dosage: UNK
     Route: 065
  30. CYCLOBENZAPRINE [Concomitant]
     Active Substance: CYCLOBENZAPRINE
     Indication: Migraine
  31. FLUOXETINE [Concomitant]
     Active Substance: FLUOXETINE HYDROCHLORIDE
     Indication: Migraine without aura
     Dosage: UNK
     Route: 065
  32. FLUOXETINE [Concomitant]
     Active Substance: FLUOXETINE HYDROCHLORIDE
     Indication: Migraine

REACTIONS (2)
  - Raynaud^s phenomenon [Not Recovered/Not Resolved]
  - Off label use [Unknown]
